FAERS Safety Report 19461279 (Version 1)
Quarter: 2021Q2

REPORT INFORMATION
  Report Type: Spontaneous
  Country: PL (occurrence: PL)
  Receive Date: 20210625
  Receipt Date: 20210625
  Transmission Date: 20210717
  Serious: Yes (Other)
  Sender: FDA-Public Use
  Company Number: PL-PFIZER INC-2021698096

PATIENT
  Age: 62 Year
  Sex: Male

DRUGS (5)
  1. ASA [Suspect]
     Active Substance: ASPIRIN
     Dosage: 75 MG, QD (IN THE EVENING)
     Route: 065
  2. ATORVASTATIN CALCIUM. [Suspect]
     Active Substance: ATORVASTATIN CALCIUM
     Dosage: 40 MG (1 TABLET)
     Route: 065
  3. CLOPIDOGREL [Suspect]
     Active Substance: CLOPIDOGREL BISULFATE
     Dosage: 75 MG, QD (IN THE MORNING)
     Route: 065
  4. VALSARTAN. [Suspect]
     Active Substance: VALSARTAN
     Dosage: 160 MG
     Route: 065
  5. METFORMIN [Suspect]
     Active Substance: METFORMIN HYDROCHLORIDE
     Dosage: 850 MG, TID
     Route: 065

REACTIONS (5)
  - Joint swelling [Unknown]
  - Dyspnoea [Unknown]
  - Orthopnoea [Unknown]
  - Fatigue [Unknown]
  - Cough [Unknown]
